FAERS Safety Report 20145721 (Version 1)
Quarter: 2021Q4

REPORT INFORMATION
  Report Type: Spontaneous
  Country: US (occurrence: None)
  Receive Date: 20211203
  Receipt Date: 20211203
  Transmission Date: 20220303
  Serious: Yes (Disabling)
  Sender: FDA-Public Use
  Company Number: None

PATIENT
  Age: 59 Year
  Sex: Female
  Weight: 88.45 kg

DRUGS (12)
  1. TINACTIN [Suspect]
     Active Substance: TOLNAFTATE
     Indication: Pruritus
     Dosage: SPRAY ON FEET
     Route: 061
     Dates: start: 20210830, end: 20211005
  2. OXYGEN [Concomitant]
     Active Substance: OXYGEN
  3. POTASSIUM CHLORIDE [Concomitant]
     Active Substance: POTASSIUM CHLORIDE
  4. SIMVASTATIN [Concomitant]
     Active Substance: SIMVASTATIN
  5. FUROSEMIDE [Concomitant]
     Active Substance: FUROSEMIDE
  6. LEVOTHYROXINE [Concomitant]
     Active Substance: LEVOTHYROXINE
  7. FAMOTIDINE [Concomitant]
     Active Substance: FAMOTIDINE
  8. VITAMIN B12 [Concomitant]
     Active Substance: CYANOCOBALAMIN
  9. THIAMINE HYDROCHLORIDE [Concomitant]
     Active Substance: THIAMINE HYDROCHLORIDE
  10. HYDROXYZINE HYDROCHLORIDE [Concomitant]
  11. TYLENOL [Concomitant]
  12. COENZYME Q10 [Concomitant]
     Active Substance: DIETARY SUPPLEMENT\UBIDECARENONE

REACTIONS (5)
  - Rash pruritic [None]
  - Rash [None]
  - Recalled product administered [None]
  - Middle insomnia [None]
  - Dermatitis [None]

NARRATIVE: CASE EVENT DATE: 20211010
